FAERS Safety Report 6982900-1 (Version None)
Quarter: 2010Q3

REPORT INFORMATION
  Report Type: 
  Country: None (occurrence: None)
  Receive Date: 20100914
  Receipt Date: 20100518
  Transmission Date: 20110219
  Serious: Yes (Other)
  Sender: FDA-Public Use
  Company Number: US-PFIZER INC-2010044786

PATIENT
  Sex: Male
  Weight: 93.878 kg

DRUGS (1)
  1. LYRICA [Suspect]
     Indication: EPILEPSY
     Dosage: 150 MG, 2X/DAY
     Dates: start: 20090428, end: 20091007

REACTIONS (2)
  - CARDIAC FAILURE CONGESTIVE [None]
  - OEDEMA PERIPHERAL [None]
